FAERS Safety Report 19135257 (Version 1)
Quarter: 2021Q2

REPORT INFORMATION
  Report Type: Other
  Country: TR (occurrence: TR)
  Receive Date: 20210414
  Receipt Date: 20210414
  Transmission Date: 20210717
  Serious: Yes (Hospitalization, Other)
  Sender: FDA-Public Use
  Company Number: TR-DEXPHARM-20210471

PATIENT
  Age: 57 Year
  Sex: Female

DRUGS (12)
  1. TRAZODONE [Concomitant]
     Active Substance: TRAZODONE HYDROCHLORIDE
  2. LANSOPRAZOLE. [Interacting]
     Active Substance: LANSOPRAZOLE
  3. SOTALOL. [Interacting]
     Active Substance: SOTALOL
  4. CANDESARTAN/HYDROCHLOROTHIAZIDE [Concomitant]
     Active Substance: CANDESARTAN CILEXETIL\HYDROCHLOROTHIAZIDE
     Dosage: 16/12.5 MG
  5. RIVAROXABAN [Interacting]
     Active Substance: RIVAROXABAN
  6. LACTULOSE. [Interacting]
     Active Substance: LACTULOSE
  7. CITALOPRAM [Concomitant]
     Active Substance: CITALOPRAM HYDROBROMIDE
  8. LEVOTHYROXINE. [Interacting]
     Active Substance: LEVOTHYROXINE
  9. VERAPAMIL [Interacting]
     Active Substance: VERAPAMIL HYDROCHLORIDE
  10. DESLORATADINE/MONTELUKAST [Concomitant]
     Active Substance: DESLORATADINE\MONTELUKAST SODIUM
     Dosage: 5/10 MG
  11. AMLODIPINE [Concomitant]
     Active Substance: AMLODIPINE BESYLATE
  12. METFORMIN [Suspect]
     Active Substance: METFORMIN HYDROCHLORIDE

REACTIONS (2)
  - Hypothyroidism [Recovered/Resolved]
  - Drug interaction [Unknown]
